FAERS Safety Report 4320954-1 (Version None)
Quarter: 2004Q1

REPORT INFORMATION
  Report Type: 
  Country: None (occurrence: None)
  Receive Date: 20040318
  Receipt Date: 20040226
  Transmission Date: 20041129
  Serious: Yes (Other)
  Sender: FDA-Public Use
  Company Number: A03200400617

PATIENT
  Age: 64 Year
  Sex: Female

DRUGS (1)
  1. PLAVIX [Suspect]
     Indication: THROMBOSIS
     Dosage: 75 MG QD- ORAL
     Route: 048
     Dates: start: 20020101, end: 20031001

REACTIONS (2)
  - INTRACARDIAC THROMBUS [None]
  - PULMONARY THROMBOSIS [None]
